FAERS Safety Report 7854481-1 (Version None)
Quarter: 2011Q4

REPORT INFORMATION
  Report Type: 
  Country: None (occurrence: None)
  Receive Date: 20111026
  Receipt Date: 20111024
  Transmission Date: 20120403
  Serious: Yes (Death)
  Sender: FDA-Public Use
  Company Number: VE-PFIZER INC-2011246696

PATIENT
  Age: 79 Year
  Sex: Male

DRUGS (2)
  1. LIPITOR [Suspect]
     Indication: HYPERCHOLESTEROLAEMIA
     Dosage: 20 MG, 1X/DAY
     Route: 048
     Dates: start: 20070101, end: 20100801
  2. CONCOR [Concomitant]
     Indication: CARDIAC DISORDER
     Dosage: 5 MG, UNK
     Route: 048
     Dates: start: 20070101, end: 20110101

REACTIONS (1)
  - RESPIRATORY ARREST [None]
